FAERS Safety Report 8135154-7 (Version None)
Quarter: 2012Q1

REPORT INFORMATION
  Report Type: 
  Country: None (occurrence: None)
  Receive Date: 20120214
  Receipt Date: 20120208
  Transmission Date: 20120608
  Serious: Yes (Hospitalization, Other)
  Sender: FDA-Public Use
  Company Number: US-PFIZER INC-2012035774

PATIENT
  Sex: Female
  Weight: 38.549 kg

DRUGS (9)
  1. ASCORBIC ACID [Concomitant]
     Indication: ARTHRALGIA
     Dosage: UNK
  2. CALCIUM [Concomitant]
     Dosage: UNK
  3. GENOTROPIN [Suspect]
     Indication: HYPOPITUITARISM
     Dosage: UNK
  4. AMBIEN [Concomitant]
     Indication: SLEEP DISORDER
     Dosage: UNK, DAILY
  5. VITAMIN E [Concomitant]
     Indication: MYALGIA
  6. VITAMIN E [Concomitant]
     Indication: ARTHRALGIA
     Dosage: UNK
  7. ASCORBIC ACID [Concomitant]
     Indication: MYALGIA
  8. SYNTHROID [Concomitant]
     Dosage: UNK
  9. PREMPRO [Concomitant]
     Dosage: UNK

REACTIONS (5)
  - ACTIVITIES OF DAILY LIVING IMPAIRED [None]
  - MUSCLE SPASMS [None]
  - HERNIA [None]
  - IMPAIRED DRIVING ABILITY [None]
  - HYPERSENSITIVITY [None]
